FAERS Safety Report 20378958 (Version 1)
Quarter: 2022Q1

REPORT INFORMATION
  Report Type: Spontaneous
  Country: US (occurrence: None)
  Receive Date: 20220125
  Receipt Date: 20220125
  Transmission Date: 20220423
  Serious: Yes (Disabling)
  Sender: FDA-Public Use
  Company Number: None

PATIENT
  Age: 55 Year
  Sex: Female
  Weight: 81 kg

DRUGS (1)
  1. LEVOTHYROXINE [Suspect]
     Active Substance: LEVOTHYROXINE
     Indication: Autoimmune thyroiditis
     Dosage: OTHER QUANTITY : 1 TABLET(S);?
     Route: 048
     Dates: start: 20211103

REACTIONS (2)
  - Mobility decreased [None]
  - Nausea [None]

NARRATIVE: CASE EVENT DATE: 20220120
